FAERS Safety Report 11437886 (Version 1)
Quarter: 2015Q3

REPORT INFORMATION
  Report Type: Spontaneous
  Country: CN (occurrence: CN)
  Receive Date: 20150831
  Receipt Date: 20150831
  Transmission Date: 20151125
  Serious: Yes (Other)
  Sender: FDA-Public Use
  Company Number: CN-BAXALTA-2015BAX013898

PATIENT
  Age: 65 Year
  Sex: Male
  Weight: 75 kg

DRUGS (22)
  1. HUMAN ALBUMIN [Suspect]
     Active Substance: ALBUMIN (HUMAN)
     Indication: SUPPORTIVE CARE
     Dosage: 250ML1X A DAY
     Route: 041
     Dates: start: 20140527, end: 20140527
  2. DEXAMETHASONE SODIUM PHOSPHATE. [Suspect]
     Active Substance: DEXAMETHASONE SODIUM PHOSPHATE
     Indication: CHEST DISCOMFORT
     Dosage: 5MILLIGRAM
     Route: 040
     Dates: start: 20140529, end: 20150529
  3. LANSOPRAZOLE. [Concomitant]
     Active Substance: LANSOPRAZOLE
     Indication: POSTOPERATIVE CARE
     Dosage: UNK
     Route: 065
     Dates: end: 20140530
  4. AMBROXOL HYDROCHLORIDE [Concomitant]
     Active Substance: AMBROXOL HYDROCHLORIDE
     Indication: POSTOPERATIVE CARE
     Dosage: UNK
     Route: 065
     Dates: end: 20140530
  5. GIK SOLUTION [Concomitant]
     Indication: POSTOPERATIVE CARE
     Dosage: UNK
     Route: 065
     Dates: end: 20140530
  6. ACETYLCYSTEINE. [Concomitant]
     Active Substance: ACETYLCYSTEINE
     Indication: POSTOPERATIVE CARE
     Dosage: UNK
     Route: 065
     Dates: end: 20140530
  7. GLUTATHIONE [Concomitant]
     Active Substance: GLUTATHIONE
     Indication: POSTOPERATIVE CARE
     Dosage: UNK
     Route: 065
     Dates: end: 20140603
  8. CREATINE PHOSPHATE [Concomitant]
     Indication: PRODUCT USED FOR UNKNOWN INDICATION
     Dosage: UNK
     Dates: end: 20140531
  9. MAGNESIUM CHLORIDE. [Concomitant]
     Active Substance: MAGNESIUM CHLORIDE
  10. HUMAN ALBUMIN [Suspect]
     Active Substance: ALBUMIN (HUMAN)
     Dosage: 150 ML, 1X A DAY
     Route: 041
     Dates: start: 20140529, end: 20140529
  11. DEXAMETHASONE SODIUM PHOSPHATE. [Suspect]
     Active Substance: DEXAMETHASONE SODIUM PHOSPHATE
     Indication: HYPERHIDROSIS
  12. ADENOSINE TRIPHOSPHATE [Concomitant]
     Active Substance: ADENOSINE TRIPHOSPHATE
     Indication: POSTOPERATIVE CARE
     Dosage: UNK
     Route: 065
     Dates: end: 20140530
  13. ISOPROTERENOL HYDROCHLORIDE [Concomitant]
     Active Substance: ISOPROTERENOL HYDROCHLORIDE
     Indication: PREMEDICATION
     Dosage: 25 MG, UNK
     Route: 030
     Dates: start: 20140529
  14. MAGNESIUM ISOGLYCYRRHIZINATE [Concomitant]
     Indication: PRODUCT USED FOR UNKNOWN INDICATION
     Dosage: UNK
     Dates: end: 20140603
  15. DEXAMETHASONE SODIUM PHOSPHATE. [Suspect]
     Active Substance: DEXAMETHASONE SODIUM PHOSPHATE
     Indication: WHEEZING
  16. ALPROSTADIL. [Concomitant]
     Active Substance: ALPROSTADIL
     Indication: POSTOPERATIVE CARE
     Dosage: UNK
     Route: 065
     Dates: end: 20140602
  17. MEGLUMINE ADENOSINE CYCLOPHOSPHATE [Concomitant]
     Indication: PRODUCT USED FOR UNKNOWN INDICATION
     Dosage: UNK
     Dates: end: 20140531
  18. RECOMBINANT HUMAN INSULIN [Concomitant]
     Active Substance: INSULIN HUMAN
     Indication: POSTOPERATIVE CARE
     Dosage: UNK
     Route: 065
     Dates: end: 20140603
  19. AMINO ACIDS [Concomitant]
     Active Substance: AMINO ACIDS
     Indication: PRODUCT USED FOR UNKNOWN INDICATION
     Dosage: UNK
     Dates: end: 20140530
  20. ALANYL GLUTAMINE [Concomitant]
     Active Substance: ALANYL GLUTAMINE
     Indication: POSTOPERATIVE CARE
     Dosage: UNK
     Route: 065
     Dates: end: 20140530
  21. CEFOTIAM HYDROCHLORIDE [Concomitant]
     Active Substance: CEFOTIAM HYDROCHLORIDE
     Indication: POSTOPERATIVE CARE
     Dosage: UNK
     Route: 065
     Dates: end: 20140529
  22. DIISOPROPYLAMINE DICHLOROACETATE [Concomitant]
     Indication: PRODUCT USED FOR UNKNOWN INDICATION
     Dosage: UNK
     Dates: end: 20140603

REACTIONS (7)
  - Pruritus [Recovered/Resolved]
  - Rash erythematous [Recovered/Resolved]
  - Hyperhidrosis [Recovered/Resolved]
  - Wheezing [Recovered/Resolved]
  - Hypertension [Recovered/Resolved]
  - Chest discomfort [Recovered/Resolved]
  - Dyspnoea [Recovered/Resolved]

NARRATIVE: CASE EVENT DATE: 20140527
